FAERS Safety Report 4318290-2 (Version None)
Quarter: 2004Q1

REPORT INFORMATION
  Report Type: 
  Country: None (occurrence: None)
  Receive Date: 20040315
  Receipt Date: 20031120
  Transmission Date: 20041129
  Serious: No
  Sender: FDA-Public Use
  Company Number: 2003187662US

PATIENT
  Age: 38 Year
  Sex: Male
  Weight: 124.7 kg

DRUGS (2)
  1. BEXTRA [Suspect]
     Indication: LIGAMENT SPRAIN
     Dosage: 10 MG, QD,
     Dates: start: 20031120
  2. IBUPROFEN [Concomitant]

REACTIONS (3)
  - DIZZINESS [None]
  - ILLUSION [None]
  - PARAESTHESIA [None]
